FAERS Safety Report 18530633 (Version 1)
Quarter: 2020Q4

REPORT INFORMATION
  Report Type: Spontaneous
  Country: JP (occurrence: JP)
  Receive Date: 20201121
  Receipt Date: 20201121
  Transmission Date: 20210114
  Serious: Yes (Hospitalization, Other)
  Sender: FDA-Public Use
  Company Number: JP-ACCORD-208400

PATIENT
  Age: 59 Year
  Sex: Male

DRUGS (1)
  1. CISPLATIN. [Suspect]
     Active Substance: CISPLATIN
     Indication: EAR NEOPLASM MALIGNANT

REACTIONS (2)
  - Altered state of consciousness [Recovered/Resolved]
  - Cerebral infarction [Recovered/Resolved]
